FAERS Safety Report 25739403 (Version 1)
Quarter: 2025Q3

REPORT INFORMATION
  Report Type: Spontaneous
  Country: JP (occurrence: JP)
  Receive Date: 20250829
  Receipt Date: 20250829
  Transmission Date: 20251021
  Serious: Yes (Other)
  Sender: RANBAXY
  Company Number: JP-SUN PHARMACEUTICAL INDUSTRIES LTD-2025RR-524430

PATIENT
  Age: 70 Year
  Sex: Male

DRUGS (6)
  1. CAPECITABINE [Suspect]
     Active Substance: CAPECITABINE
     Indication: Colon cancer
     Dosage: 2000 MILLIGRAM/SQ. METER, BID
     Route: 048
  2. OXALIPLATIN [Suspect]
     Active Substance: OXALIPLATIN
     Indication: Colon cancer
  3. PALONOSETRON [Suspect]
     Active Substance: PALONOSETRON
     Indication: Colon cancer
     Route: 040
  4. APREPITANT [Suspect]
     Active Substance: APREPITANT
     Indication: Colon cancer
     Route: 048
  5. APREPITANT [Suspect]
     Active Substance: APREPITANT
     Route: 048
  6. BEVACIZUMAB [Suspect]
     Active Substance: BEVACIZUMAB
     Indication: Colon cancer
     Route: 065

REACTIONS (6)
  - Drug ineffective [Unknown]
  - Hiccups [Unknown]
  - Nausea [Unknown]
  - Decreased appetite [Unknown]
  - Drug intolerance [Unknown]
  - Inappropriate antidiuretic hormone secretion [Recovered/Resolved]
